FAERS Safety Report 13163876 (Version 1)
Quarter: 2017Q1

REPORT INFORMATION
  Report Type: Spontaneous
  Country: US (occurrence: US)
  Receive Date: 20170130
  Receipt Date: 20170130
  Transmission Date: 20170428
  Serious: Yes (Other)
  Sender: FDA-Public Use
  Company Number: US-LPDUSPRD-20170044

PATIENT
  Age: 1 Day

DRUGS (2)
  1. VITAMIN K [Suspect]
     Active Substance: PHYTONADIONE
     Dosage: 1 MG
     Route: 030
  2. METHYLERGONOVINE MALEATE INJECTION, USP (0740-20) [Suspect]
     Active Substance: METHYLERGONOVINE MALEATE
     Dosage: 0.1 MG
     Route: 030

REACTIONS (3)
  - Oxygen saturation decreased [Unknown]
  - Wrong drug administered [Unknown]
  - Ergot poisoning [Unknown]
